FAERS Safety Report 13863039 (Version 3)
Quarter: 2020Q4

REPORT INFORMATION
  Report Type: Report from Study
  Country: AU (occurrence: AU)
  Receive Date: 20170814
  Receipt Date: 20201222
  Transmission Date: 20210113
  Serious: Yes (Death, Hospitalization, Other)
  Sender: FDA-Public Use
  Company Number: AU-AMGEN-AUSSL2017113733

PATIENT
  Age: 75 Year
  Sex: Male

DRUGS (2)
  1. KYPROLIS [Suspect]
     Active Substance: CARFILZOMIB
     Indication: PLASMA CELL MYELOMA
     Dosage: 56 MG/M2, (100 MG THERAPEUTIC DOSE) UNK
     Route: 065
     Dates: start: 20170614, end: 20170614
  2. KYPROLIS [Suspect]
     Active Substance: CARFILZOMIB
     Dosage: 56 MG/M2, (100 MG THERAPEUTIC DOSE) UNK
     Route: 065
     Dates: start: 20170615

REACTIONS (4)
  - Death [Fatal]
  - Acute myocardial infarction [Unknown]
  - Aortic stenosis [Unknown]
  - Pulmonary oedema [Unknown]

NARRATIVE: CASE EVENT DATE: 201706
